FAERS Safety Report 5373862-1 (Version None)
Quarter: 2007Q2

REPORT INFORMATION
  Report Type: 
  Country: None (occurrence: None)
  Receive Date: 20070628
  Receipt Date: 20070618
  Transmission Date: 20071010
  Serious: Yes (Other)
  Sender: FDA-Public Use
  Company Number: US-PFIZER INC-2007020083

PATIENT
  Sex: Male
  Weight: 81.6 kg

DRUGS (17)
  1. CHANTIX [Suspect]
     Indication: SMOKING CESSATION THERAPY
     Route: 048
  2. CHANTIX [Suspect]
     Indication: TOBACCO ABUSE
  3. NICOTROL [Suspect]
     Indication: SMOKING CESSATION THERAPY
     Route: 055
  4. OXYCONTIN [Concomitant]
     Indication: BACK PAIN
  5. CRESTOR [Concomitant]
  6. ACETYLSALICYLIC ACID SRT [Concomitant]
  7. ACTOS [Concomitant]
  8. LASIX [Concomitant]
  9. REGLAN [Concomitant]
  10. PRILOSEC [Concomitant]
  11. VALSARTAN [Concomitant]
  12. COREG [Concomitant]
  13. TAMSULOSIN HCL [Concomitant]
  14. TIGAN [Concomitant]
  15. DESYREL [Concomitant]
  16. RESTORIL [Concomitant]
  17. NEURONTIN [Concomitant]

REACTIONS (4)
  - DRUG INEFFECTIVE [None]
  - DYSGEUSIA [None]
  - NAUSEA [None]
  - STRESS [None]
